FAERS Safety Report 16371247 (Version 2)
Quarter: 2019Q3

REPORT INFORMATION
  Report Type: Spontaneous
  Country: DE (occurrence: DE)
  Receive Date: 20190530
  Receipt Date: 20190710
  Transmission Date: 20191004
  Serious: Yes (Hospitalization)
  Sender: FDA-Public Use
  Company Number: PHHY2019DE122515

PATIENT
  Age: 25 Year
  Sex: Male
  Weight: 87.5 kg

DRUGS (4)
  1. MEDIKINET [Interacting]
     Active Substance: METHYLPHENIDATE
     Dosage: 50 MG, QD
     Route: 048
     Dates: start: 20190315
  2. BUPROPION. [Suspect]
     Active Substance: BUPROPION
     Dosage: 300 MG, QD
     Route: 048
     Dates: start: 20190424
  3. MEDIKINET [Interacting]
     Active Substance: METHYLPHENIDATE
     Indication: PRODUCT USED FOR UNKNOWN INDICATION
     Dosage: 60 MG, UNK
     Route: 065
  4. BUPROPION. [Suspect]
     Active Substance: BUPROPION
     Indication: DEPRESSION
     Dosage: 150 MG, UNK
     Route: 065

REACTIONS (3)
  - Bradycardia [Recovered/Resolved]
  - Syncope [Unknown]
  - Drug interaction [Recovered/Resolved]

NARRATIVE: CASE EVENT DATE: 20190429
